FAERS Safety Report 5470348-0 (Version None)
Quarter: 2007Q3

REPORT INFORMATION
  Report Type: 
  Country: None (occurrence: None)
  Receive Date: 20070925
  Receipt Date: 20070821
  Transmission Date: 20080115
  Serious: Yes (Life-Threatening, Hospitalization)
  Sender: FDA-Public Use
  Company Number: ITPFP-E-20070002

PATIENT
  Age: 62 Year
  Sex: Male

DRUGS (2)
  1. NAVELBINE [Suspect]
     Indication: LUNG SQUAMOUS CELL CARCINOMA STAGE IV
     Dosage: 45 MG 1 X WK IV
     Route: 042
     Dates: start: 20070620, end: 20070628
  2. CARBOPLATIN [Suspect]
     Dosage: 650 MG QD IV
     Route: 042
     Dates: start: 20070821, end: 20070821

REACTIONS (1)
  - ACUTE MYOCARDIAL INFARCTION [None]
